FAERS Safety Report 11677211 (Version 1)
Quarter: 2015Q4

REPORT INFORMATION
  Report Type: Spontaneous
  Country: CA (occurrence: CA)
  Receive Date: 20151028
  Receipt Date: 20151028
  Transmission Date: 20160304
  Serious: Yes (Hospitalization)
  Sender: FDA-Public Use
  Company Number: CA-ABBVIE-15P-028-1489591-00

PATIENT
  Age: 21 Year
  Sex: Female

DRUGS (1)
  1. BIAXIN [Suspect]
     Active Substance: CLARITHROMYCIN
     Indication: EAR INFECTION
     Route: 065

REACTIONS (10)
  - Nausea [Recovered/Resolved]
  - Hepatic enzyme abnormal [Recovered/Resolved]
  - Rash [Recovered/Resolved]
  - Hepatitis [Recovered/Resolved]
  - Jaundice [Recovered/Resolved]
  - Cholecystitis [Recovered/Resolved]
  - Abdominal pain [Recovered/Resolved]
  - Pruritus [Recovered/Resolved]
  - Lymphadenopathy [Recovered/Resolved]
  - Gallbladder oedema [Recovered/Resolved]
